FAERS Safety Report 7732576-0 (Version None)
Quarter: 2011Q3

REPORT INFORMATION
  Report Type: 
  Country: None (occurrence: None)
  Receive Date: 20110906
  Receipt Date: 20110823
  Transmission Date: 20111222
  Serious: Yes (Hospitalization, Other)
  Sender: FDA-Public Use
  Company Number: US-BAYER-2011-028613

PATIENT
  Age: 21 Year
  Sex: Female
  Weight: 58.957 kg

DRUGS (2)
  1. LORTAB [Concomitant]
  2. YAZ [Suspect]

REACTIONS (2)
  - GASTROINTESTINAL DISORDER [None]
  - PAIN [None]
